FAERS Safety Report 23468996 (Version 1)
Quarter: 2024Q1

REPORT INFORMATION
  Report Type: Spontaneous
  Country: US (occurrence: None)
  Receive Date: 20240201
  Receipt Date: 20240201
  Transmission Date: 20240409
  Serious: Yes (Death)
  Sender: FDA-Public Use
  Company Number: None

PATIENT
  Age: 64 Year
  Sex: Female
  Weight: 57.2 kg

DRUGS (1)
  1. CARVYKTI [Suspect]
     Active Substance: CILTACABTAGENE AUTOLEUCEL
     Indication: Plasma cell myeloma
     Dosage: 1 TOT - TOTAL ONCE INTRAVENOUS
     Route: 042
     Dates: start: 20230628, end: 20230628

REACTIONS (6)
  - Cytokine release syndrome [None]
  - Immune effector cell-associated neurotoxicity syndrome [None]
  - Fungal infection [None]
  - Cerebrovascular accident [None]
  - Respiratory failure [None]
  - Mucormycosis [None]

NARRATIVE: CASE EVENT DATE: 20240120
